FAERS Safety Report 7966484-7 (Version None)
Quarter: 2011Q4

REPORT INFORMATION
  Report Type: 
  Country: None (occurrence: None)
  Receive Date: 20111208
  Receipt Date: 20110414
  Transmission Date: 20120403
  Serious: Yes (Other)
  Sender: FDA-Public Use
  Company Number: US-ABBOTT-11P-163-0881468-00

PATIENT
  Sex: Female
  Weight: 71.278 kg

DRUGS (26)
  1. IMMUNE GLOBULIN NOS [Concomitant]
     Indication: IN VITRO FERTILISATION
     Route: 042
     Dates: start: 20110110, end: 20110110
  2. INTRALIPID 10% [Concomitant]
     Indication: IN VITRO FERTILISATION
     Route: 042
     Dates: start: 20110110, end: 20110307
  3. SPECIALTY ESTROGEN AND PROGESTERONE [Concomitant]
     Indication: PRODUCT USED FOR UNKNOWN INDICATION
     Route: 067
     Dates: start: 20110117, end: 20110307
  4. CYANOCOBALAMIN [Concomitant]
     Indication: IN VITRO FERTILISATION
     Route: 048
     Dates: start: 20110102, end: 20110307
  5. DEXAMETHASONE [Concomitant]
     Route: 048
     Dates: start: 20110116, end: 20110307
  6. GANIRELIX ACETATE INJECTION [Concomitant]
     Indication: BLOOD GONADOTROPHIN ABNORMAL
     Route: 050
     Dates: start: 20110107, end: 20110113
  7. MULTI-VITAMINS [Concomitant]
     Indication: PRODUCT USED FOR UNKNOWN INDICATION
     Route: 048
     Dates: start: 20110102, end: 20110307
  8. VITAMIN K TAB [Concomitant]
     Indication: PRODUCT USED FOR UNKNOWN INDICATION
     Dosage: COMBINED W/VITAMIN D AND CALCIUM DAILY
     Route: 048
     Dates: start: 20110102, end: 20110307
  9. CLIMARA [Concomitant]
     Indication: IN VITRO FERTILISATION
     Dosage: PATCH; TOPICAL: FACE, SCALP DAILY
     Route: 062
     Dates: start: 20110102, end: 20110103
  10. DEXAMETHASONE [Concomitant]
     Indication: IN VITRO FERTILISATION
     Route: 048
     Dates: start: 20110102, end: 20110115
  11. CALCIUM [Concomitant]
     Indication: PRODUCT USED FOR UNKNOWN INDICATION
     Dosage: COMBINED W/VITAMIN D AND K DAILY
     Route: 048
     Dates: start: 20110102, end: 20110307
  12. LOVENOX [Concomitant]
     Indication: IN VITRO FERTILISATION
     Route: 050
     Dates: start: 20110118, end: 20110302
  13. VITAMIN D [Concomitant]
     Indication: VITAMIN D DEFICIENCY
     Route: 048
     Dates: start: 20110102, end: 20110307
  14. TIROSINT [Concomitant]
     Indication: THYROID DISORDER
     Route: 048
     Dates: start: 20110128, end: 20110227
  15. GONAL-F [Concomitant]
     Indication: BLOOD FOLLICLE STIMULATING HORMONE
     Route: 050
     Dates: start: 20110103, end: 20110113
  16. VITAMIN D [Concomitant]
     Indication: PRODUCT USED FOR UNKNOWN INDICATION
     Dosage: COMBINED W/VITAMIN K AND CALCIUM DAILY
     Route: 048
     Dates: start: 20110102, end: 20110307
  17. INOSITOL [Concomitant]
     Indication: IN VITRO FERTILISATION
     Route: 048
     Dates: start: 20110102, end: 20110115
  18. PYCHOGENOL/RESERVATROL [Concomitant]
     Indication: PRODUCT USED FOR UNKNOWN INDICATION
     Dates: start: 20110102, end: 20110115
  19. COENZYME Q10 [Concomitant]
     Indication: IN VITRO FERTILISATION
     Dosage: 400-600 MG DAILY
     Route: 048
     Dates: start: 20110102, end: 20110115
  20. ASPIRIN [Concomitant]
     Indication: PROPHYLAXIS OF ABORTION
     Route: 048
     Dates: start: 20110102, end: 20110111
  21. ASPIRIN [Concomitant]
     Route: 048
     Dates: start: 20110117, end: 20110302
  22. HUMIRA [Suspect]
     Indication: IN VITRO FERTILISATION
     Dates: start: 20110111, end: 20110207
  23. TIROSINT [Concomitant]
     Route: 048
     Dates: start: 20110228, end: 20110308
  24. ASPIRIN [Concomitant]
     Dosage: 3.5 PER WEEK
     Route: 048
     Dates: start: 20110304, end: 20110307
  25. MELATONIN [Concomitant]
     Indication: IN VITRO FERTILISATION
     Route: 048
     Dates: start: 20110102, end: 20110115
  26. MENOPUR [Concomitant]
     Indication: IN VITRO FERTILISATION
     Route: 050
     Dates: start: 20110103, end: 20110113

REACTIONS (3)
  - VITAMIN D DEFICIENCY [None]
  - SUBCHORIONIC HAEMORRHAGE [None]
  - OFF LABEL USE [None]
